FAERS Safety Report 16743973 (Version 4)
Quarter: 2022Q4

REPORT INFORMATION
  Report Type: Spontaneous
  Country: US (occurrence: US)
  Receive Date: 20190827
  Receipt Date: 20221121
  Transmission Date: 20230112
  Serious: Yes (Hospitalization, Other)
  Sender: FDA-Public Use
  Company Number: US-SA-2019SA238580

PATIENT
  Age: 21 Year
  Sex: Female
  Weight: 77 kg

DRUGS (28)
  1. DUPIXENT [Suspect]
     Active Substance: DUPILUMAB
     Indication: Asthma
     Dosage: 600 MG, 1X
     Route: 058
     Dates: start: 2019, end: 2019
  2. DUPIXENT [Suspect]
     Active Substance: DUPILUMAB
     Indication: Infective pulmonary exacerbation of cystic fibrosis
     Dosage: 300 MG, QOW
     Route: 058
     Dates: start: 20190820
  3. ALBUTEROL SULFATE [Concomitant]
     Active Substance: ALBUTEROL SULFATE
  4. AQUADEKS [ASCORBIC ACID;BETACAROTENE;BIOTIN;CALCIUM PANTOTHENATE;COLEC [Concomitant]
  5. AZITHROMYCIN [Concomitant]
     Active Substance: AZITHROMYCIN
  6. CLONAZEPAM [Concomitant]
     Active Substance: CLONAZEPAM
  7. OMEPRAZOLE [Concomitant]
     Active Substance: OMEPRAZOLE
  8. QNASL [Concomitant]
     Active Substance: BECLOMETHASONE DIPROPIONATE
  9. SINGULAIR [Concomitant]
     Active Substance: MONTELUKAST SODIUM
  10. SYMBICORT [Concomitant]
     Active Substance: BUDESONIDE\FORMOTEROL FUMARATE DIHYDRATE
  11. XYZAL [Concomitant]
     Active Substance: LEVOCETIRIZINE DIHYDROCHLORIDE
  12. PERTZYE [Concomitant]
     Active Substance: PANCRELIPASE AMYLASE\PANCRELIPASE LIPASE\PANCRELIPASE PROTEASE
  13. CITALOPRAM [Concomitant]
     Active Substance: CITALOPRAM HYDROBROMIDE
  14. CIPROFLOXACIN HYDROCHLORIDE [Concomitant]
     Active Substance: CIPROFLOXACIN HYDROCHLORIDE
  15. SULFAMETHOXAZOLE [Concomitant]
     Active Substance: SULFAMETHOXAZOLE
  16. PREDNISONE [Concomitant]
     Active Substance: PREDNISONE
  17. AMITRIPTYLINE HYDROCHLORIDE [Concomitant]
     Active Substance: AMITRIPTYLINE HYDROCHLORIDE
  18. SYMDEKO [Concomitant]
     Active Substance: IVACAFTOR\TEZACAFTOR
  19. PULMOZYME [Concomitant]
     Active Substance: DORNASE ALFA
  20. PULMOZYME [Concomitant]
     Active Substance: DORNASE ALFA
     Dosage: UNK
  21. TRIKAFTA [Concomitant]
     Active Substance: ELEXACAFTOR\IVACAFTOR\TEZACAFTOR
  22. ESCITALOPRAM [Concomitant]
     Active Substance: ESCITALOPRAM OXALATE
  23. LUMIGAN [Concomitant]
     Active Substance: BIMATOPROST
  24. SIMVASTATIN [Concomitant]
     Active Substance: SIMVASTATIN
  25. ESTRADIOL [Concomitant]
     Active Substance: ESTRADIOL
  26. NYSTATIN\TRIAMCINOLONE [Concomitant]
     Active Substance: NYSTATIN\TRIAMCINOLONE
  27. FLUCONAZOLE [Concomitant]
     Active Substance: FLUCONAZOLE
  28. BUTALBITAL AND ACETAMINOPHEN [Concomitant]
     Active Substance: ACETAMINOPHEN\BUTALBITAL

REACTIONS (3)
  - Infective pulmonary exacerbation of cystic fibrosis [Unknown]
  - Infective pulmonary exacerbation of cystic fibrosis [Unknown]
  - Product use in unapproved indication [Unknown]

NARRATIVE: CASE EVENT DATE: 20190101
